FAERS Safety Report 18102978 (Version 3)
Quarter: 2021Q1

REPORT INFORMATION
  Report Type: Spontaneous
  Country: US (occurrence: US)
  Receive Date: 20200803
  Receipt Date: 20210223
  Transmission Date: 20210419
  Serious: Yes (Hospitalization, Other)
  Sender: FDA-Public Use
  Company Number: US-PFIZER INC-2020290671

PATIENT
  Age: 46 Year
  Sex: Female

DRUGS (2)
  1. NORMAL SALINE [Concomitant]
     Active Substance: SODIUM CHLORIDE
     Dosage: UNK
     Route: 008
  2. BUPIVACAINE HCL [Suspect]
     Active Substance: BUPIVACAINE HYDROCHLORIDE
     Indication: EPIDURAL ANAESTHESIA
     Dosage: 266 MG OF LIPOSOMAL BUPIVACAINE (LB) DILUTED TO 40 ML
     Route: 008

REACTIONS (2)
  - Anaesthetic complication [Recovered/Resolved]
  - Cauda equina syndrome [Recovered/Resolved]
